FAERS Safety Report 9339277 (Version 1)
Quarter: 2013Q2

REPORT INFORMATION
  Report Type: Spontaneous
  Country: US (occurrence: US)
  Receive Date: 20130610
  Receipt Date: 20130610
  Transmission Date: 20140414
  Serious: No
  Sender: FDA-Public Use
  Company Number: US-009507513-1305USA012041

PATIENT
  Age: 60 Year
  Sex: Female

DRUGS (1)
  1. PEGINTRON [Suspect]
     Indication: HEPATITIS C
     Dosage: 150 MICROGRAM, QW
     Route: 058
     Dates: start: 20130519

REACTIONS (3)
  - Pyrexia [Recovering/Resolving]
  - Nausea [Recovering/Resolving]
  - Product quality issue [Unknown]
